FAERS Safety Report 24661821 (Version 1)
Quarter: 2024Q4

REPORT INFORMATION
  Report Type: Spontaneous
  Country: US (occurrence: US)
  Receive Date: 20241125
  Receipt Date: 20241125
  Transmission Date: 20250114
  Serious: No
  Sender: SANOFI AVENTIS
  Company Number: US-SA-2024SA340528

PATIENT
  Age: 30 Year
  Sex: Female

DRUGS (2)
  1. DUPIXENT [Suspect]
     Active Substance: DUPILUMAB
     Indication: Asthma
     Dosage: 300 MG, QOW
     Route: 058
     Dates: start: 201907, end: 20241020
  2. LUMRYZ [Concomitant]
     Active Substance: SODIUM OXYBATE

REACTIONS (3)
  - Mood altered [Unknown]
  - Agitation [Unknown]
  - Asthma [Unknown]

NARRATIVE: CASE EVENT DATE: 20241001
